FAERS Safety Report 18527179 (Version 1)
Quarter: 2020Q4

REPORT INFORMATION
  Report Type: Spontaneous
  Country: NL (occurrence: NL)
  Receive Date: 20201120
  Receipt Date: 20201120
  Transmission Date: 20210114
  Serious: Yes (Other)
  Sender: FDA-Public Use
  Company Number: NL-TEVA-2020-NL-1851684

PATIENT
  Age: 72 Year
  Sex: Male
  Weight: 84 kg

DRUGS (3)
  1. OMEPRAZOL / BRAND NAME NOT SPECIFIED [Concomitant]
     Dosage: 100 MILLIGRAM DAILY;  THERAPY START DATE AND END DATE: ASKED BUT UNKNOWN
  2. TAMSULOSINE TABLET MGA 0,4MG / BRAND NAME NOT SPECIFIED [Suspect]
     Active Substance: TAMSULOSIN HYDROCHLORIDE
     Indication: BENIGN PROSTATIC HYPERPLASIA
     Dosage: .4 MILLIGRAM DAILY;  THERAPY END DATE: ASKED BUT UNKNOWN
     Dates: start: 20200917
  3. FLECAINIDE TABLET 100MG / BRAND NAME NOT SPECIFIED [Concomitant]
     Dosage: 200 MILLIGRAM DAILY; THERAPY START DATE AND END DATE: ASKED BUT UNKNOWN

REACTIONS (1)
  - Retrograde ejaculation [Unknown]

NARRATIVE: CASE EVENT DATE: 20201010
